FAERS Safety Report 4915397-3 (Version None)
Quarter: 2006Q1

REPORT INFORMATION
  Report Type: 
  Country: None (occurrence: None)
  Receive Date: 20060217
  Receipt Date: 20050930
  Transmission Date: 20060701
  Serious: Yes (Hospitalization, Disabling)
  Sender: FDA-Public Use
  Company Number: US-MERCK-0510USA00750

PATIENT
  Age: 52 Year
  Sex: Female
  Weight: 68 kg

DRUGS (14)
  1. VIOXX [Suspect]
     Indication: ARTHRALGIA
     Route: 048
     Dates: start: 20010215, end: 20011001
  2. VIOXX [Suspect]
     Indication: OSTEOARTHRITIS
     Route: 048
     Dates: start: 20010215, end: 20011001
  3. CAPTOPRIL [Concomitant]
     Route: 065
  4. COREG [Concomitant]
     Route: 065
  5. ECOTRIN [Concomitant]
     Route: 065
  6. VASOTEC RPD [Concomitant]
     Route: 048
  7. GLUCOPHAGE [Concomitant]
     Route: 065
  8. NITRO-DUR [Concomitant]
     Route: 065
  9. NITROQUICK [Concomitant]
     Route: 065
  10. PLAVIX [Concomitant]
     Route: 065
  11. PREMPRO [Concomitant]
     Route: 065
  12. PREVACID [Concomitant]
     Route: 065
  13. ACETAMINOPHEN AND PROPOXYPHENE HYDROCHLORIDE [Concomitant]
     Route: 065
  14. ULTRAM [Concomitant]
     Route: 065

REACTIONS (5)
  - CARPAL TUNNEL SYNDROME [None]
  - CHEST PAIN [None]
  - CORONARY ARTERY DISEASE [None]
  - DEPRESSION [None]
  - MYOCARDIAL INFARCTION [None]
